FAERS Safety Report 5474240-7 (Version None)
Quarter: 2007Q4

REPORT INFORMATION
  Report Type: 
  Country: None (occurrence: None)
  Receive Date: 20071002
  Receipt Date: 20070703
  Transmission Date: 20080405
  Serious: No
  Sender: FDA-Public Use
  Company Number: US-ASTRAZENECA-2007UW14279

PATIENT
  Age: 57 Year
  Sex: Female
  Weight: 131.5 kg

DRUGS (7)
  1. ARIMIDEX [Suspect]
     Indication: BREAST CANCER METASTATIC
     Route: 048
  2. VYTORIN [Concomitant]
  3. COREG [Concomitant]
  4. ALTACE [Concomitant]
  5. GLUCOPHAGE [Concomitant]
  6. DEMADEX [Concomitant]
  7. EFFEXOR [Concomitant]

REACTIONS (1)
  - BLOOD HOMOCYSTEINE INCREASED [None]
